FAERS Safety Report 16368643 (Version 1)
Quarter: 2019Q2

REPORT INFORMATION
  Report Type: Spontaneous
  Country: US (occurrence: US)
  Receive Date: 20190529
  Receipt Date: 20190529
  Transmission Date: 20190711
  Serious: No
  Sender: FDA-Public Use
  Company Number: PHEH2019US022398

PATIENT
  Sex: Female

DRUGS (2)
  1. ESTRADIOL. [Suspect]
     Active Substance: ESTRADIOL
     Indication: HOT FLUSH
     Dosage: UNK
     Route: 065
  2. VIVELLE-DOT [Suspect]
     Active Substance: ESTRADIOL
     Indication: HOT FLUSH
     Dosage: UNK
     Route: 065

REACTIONS (1)
  - Drug ineffective [Unknown]
